FAERS Safety Report 10255228 (Version 1)
Quarter: 2014Q2

REPORT INFORMATION
  Report Type: Spontaneous
  Country: US (occurrence: None)
  Receive Date: 20140522
  Receipt Date: 20140522
  Transmission Date: 20141212
  Serious: No
  Sender: FDA-Public Use
  Company Number: 1000054486

PATIENT
  Age: 57 Year
  Sex: Female

DRUGS (7)
  1. TUDORZA PRESSAIR (ACLIDINIUM BROMIDE) (400 MICROGRAM, POWDER) [Suspect]
     Indication: CHRONIC OBSTRUCTIVE PULMONARY DISEASE
     Route: 055
     Dates: start: 2013, end: 2013
  2. DULERA [Concomitant]
  3. SINGULAR (MONTELUKAST SODIUM) [Concomitant]
  4. PROAIR HFA (SALBUTAMOL SULFATE) [Concomitant]
  5. ALBUTEROL SULFATE (SALBUTAMOL SULFATE) [Concomitant]
  6. ASPIRIN (ACETYLSALICYLIC ACID) [Concomitant]
  7. AMLODIPINE [Concomitant]

REACTIONS (1)
  - Heart rate increased [None]
